FAERS Safety Report 5778776-0 (Version None)
Quarter: 2008Q2

REPORT INFORMATION
  Report Type: 
  Country: None (occurrence: None)
  Receive Date: 20080619
  Receipt Date: 20080609
  Transmission Date: 20081010
  Serious: Yes (Other)
  Sender: FDA-Public Use
  Company Number: US-JNJFOC-20080602385

PATIENT
  Sex: Male
  Weight: 72.58 kg

DRUGS (4)
  1. REMICADE [Suspect]
     Indication: RHEUMATOID ARTHRITIS
     Route: 042
  2. XANAX [Concomitant]
  3. CALCIUM [Concomitant]
  4. MAGNESIUM [Concomitant]

REACTIONS (2)
  - SPINAL FUSION SURGERY [None]
  - WOUND INFECTION [None]
